FAERS Safety Report 6254093-X (Version None)
Quarter: 2009Q3

REPORT INFORMATION
  Report Type: 
  Country: None (occurrence: None)
  Receive Date: 20090702
  Receipt Date: 20090623
  Transmission Date: 20100115
  Serious: Yes (Death, Hospitalization, Other)
  Sender: FDA-Public Use
  Company Number: JP-JNJFOC-20090608442

PATIENT
  Sex: Female
  Weight: 55 kg

DRUGS (17)
  1. REMICADE [Suspect]
     Route: 042
  2. REMICADE [Suspect]
     Dosage: 6 INFUSIONS
     Route: 042
  3. REMICADE [Suspect]
     Indication: RHEUMATOID ARTHRITIS
     Route: 042
  4. DIOVAN [Concomitant]
     Indication: HYPERTENSION
     Route: 048
  5. THEO-DUR [Concomitant]
     Indication: ASTHMA
     Route: 048
  6. ISCOTIN [Concomitant]
     Indication: ANTIBIOTIC PROPHYLAXIS
     Route: 048
  7. PYDOXAL [Concomitant]
     Indication: PROPHYLAXIS
     Route: 048
  8. ZYRTEC [Concomitant]
     Indication: PROPHYLAXIS
     Route: 048
  9. FOLIAMIN [Concomitant]
     Indication: PROPHYLAXIS
     Route: 048
  10. FOSAMAC [Concomitant]
     Indication: OSTEOPOROSIS PROPHYLAXIS
     Route: 048
  11. ADALAT [Concomitant]
     Route: 048
  12. GASTER D [Concomitant]
     Indication: GASTRIC ULCER
     Route: 048
  13. VOLTAREN [Concomitant]
     Indication: RHEUMATOID ARTHRITIS
     Route: 048
  14. CYTOTEC [Concomitant]
     Indication: GASTRIC ULCER
     Route: 048
  15. PREDNISOLONE [Concomitant]
     Route: 048
  16. PREDNISOLONE [Concomitant]
     Indication: RHEUMATOID ARTHRITIS
     Route: 048
  17. RHEUMATREX [Concomitant]
     Indication: RHEUMATOID ARTHRITIS
     Route: 048

REACTIONS (4)
  - HEADACHE [None]
  - HYPERTENSION [None]
  - SUBARACHNOID HAEMORRHAGE [None]
  - VOMITING [None]
